FAERS Safety Report 5243751-1 (Version None)
Quarter: 2007Q1

REPORT INFORMATION
  Report Type: 
  Country: None (occurrence: None)
  Receive Date: 20070220
  Receipt Date: 20070220
  Transmission Date: 20070707
  Serious: Yes (Disabling, Other)
  Sender: FDA-Public Use
  Company Number: None

PATIENT
  Age: 47 Year
  Sex: Female
  Weight: 97.5234 kg

DRUGS (1)
  1. LEVAQUIN [Suspect]
     Indication: BRONCHITIS
     Dosage: 500 MG 7 DAYS/1 DAILY PO
     Route: 048
     Dates: start: 20060921, end: 20060928

REACTIONS (15)
  - ASTHENIA [None]
  - CONTUSION [None]
  - DIARRHOEA [None]
  - DYSSTASIA [None]
  - EYE DISORDER [None]
  - FLUID RETENTION [None]
  - GAIT DISTURBANCE [None]
  - HYPOAESTHESIA [None]
  - INSOMNIA [None]
  - JOINT SWELLING [None]
  - NAUSEA [None]
  - PAIN [None]
  - PARAESTHESIA [None]
  - SERUM SICKNESS [None]
  - STEVENS-JOHNSON SYNDROME [None]
